FAERS Safety Report 17474576 (Version 1)
Quarter: 2020Q1

REPORT INFORMATION
  Report Type: Spontaneous
  Country: US (occurrence: US)
  Receive Date: 20200228
  Receipt Date: 20200228
  Transmission Date: 20200409
  Serious: No
  Sender: FDA-Public Use
  Company Number: None

PATIENT
  Age: 83 Year
  Sex: Male
  Weight: 78.75 kg

DRUGS (11)
  1. ATENOLOL/CHLORTHALIDONE [Concomitant]
     Active Substance: ATENOLOL\CHLORTHALIDONE
  2. GABAPENTIN. [Concomitant]
     Active Substance: GABAPENTIN
  3. HYDRALAZINE [Concomitant]
     Active Substance: HYDRALAZINE HYDROCHLORIDE
  4. LATANOPROST. [Concomitant]
     Active Substance: LATANOPROST
  5. LIDOCAINE. [Concomitant]
     Active Substance: LIDOCAINE
  6. DOCUSATE SODIUM. [Concomitant]
     Active Substance: DOCUSATE SODIUM
  7. SENNA LAXATIVE [Concomitant]
     Active Substance: SENNOSIDES
  8. BRIMONIDINE [Concomitant]
     Active Substance: BRIMONIDINE TARTRATE
  9. AMLODIPINE [Concomitant]
     Active Substance: AMLODIPINE BESYLATE
  10. ACETAMINOPHEN. [Concomitant]
     Active Substance: ACETAMINOPHEN
  11. AFINITOR [Suspect]
     Active Substance: EVEROLIMUS

REACTIONS (2)
  - Asthenia [None]
  - Diarrhoea [None]

NARRATIVE: CASE EVENT DATE: 20200228
